FAERS Safety Report 4757485-0 (Version None)
Quarter: 2005Q3

REPORT INFORMATION
  Report Type: 
  Country: None (occurrence: None)
  Receive Date: 20050831
  Receipt Date: 20050823
  Transmission Date: 20060218
  Serious: Yes (Other)
  Sender: FDA-Public Use
  Company Number: US-MERCK-0508USA03834

PATIENT
  Sex: Male

DRUGS (3)
  1. ZOCOR [Suspect]
     Indication: ILL-DEFINED DISORDER
     Route: 048
  2. LIPITOR [Suspect]
     Indication: ILL-DEFINED DISORDER
     Route: 065
  3. NIACIN [Suspect]
     Route: 065
     Dates: start: 20050101

REACTIONS (2)
  - CONFUSIONAL STATE [None]
  - EMBOLIC STROKE [None]
